FAERS Safety Report 24105494 (Version 2)
Quarter: 2024Q3

REPORT INFORMATION
  Report Type: Report from Study
  Country: ES (occurrence: ES)
  Receive Date: 20240717
  Receipt Date: 20240730
  Transmission Date: 20241016
  Serious: Yes (Hospitalization)
  Sender: ROCHE
  Company Number: ES-CELLTRION HEALTHCARE HUNGARY KFT-2022ES000677

PATIENT
  Age: 51 Year
  Sex: Male
  Weight: 89 kg

DRUGS (18)
  1. RITUXIMAB [Suspect]
     Active Substance: RITUXIMAB
     Indication: Lymphoma
     Dosage: 757.7 MILLIGRAM, WEEKLY
     Route: 041
     Dates: start: 20211228
  2. RITUXIMAB [Suspect]
     Active Substance: RITUXIMAB
     Dosage: ON 04/JAN/2022, LAST DOSE OF RITUXIMAB PRIOR SAE OF INFUSION REACTION
     Route: 041
     Dates: start: 20220104
  3. RITUXIMAB [Suspect]
     Active Substance: RITUXIMAB
     Route: 041
     Dates: start: 20220125
  4. RITUXIMAB [Suspect]
     Active Substance: RITUXIMAB
     Dosage: ON 04/JAN/2022, LAST DOSE OF RITUXIMAB PRIOR SAE OF INFUSION REACTION
     Route: 041
     Dates: start: 20220118
  5. LENALIDOMIDE [Suspect]
     Active Substance: LENALIDOMIDE
     Indication: Lymphoma
     Dosage: 20 MILLIGRAM, QD
     Route: 048
  6. LENALIDOMIDE [Suspect]
     Active Substance: LENALIDOMIDE
     Dosage: ON 04/JAN/2022, THE PATIENT RECEIVED LAST DOSE OF LENALIDOMIDE PRIOR TO THE SAE TUMOR FLARE REACTION
     Route: 048
     Dates: start: 20211228
  7. LENALIDOMIDE [Suspect]
     Active Substance: LENALIDOMIDE
     Route: 065
     Dates: start: 20220125
  8. LENALIDOMIDE [Suspect]
     Active Substance: LENALIDOMIDE
     Route: 065
     Dates: start: 20220117
  9. LENALIDOMIDE [Suspect]
     Active Substance: LENALIDOMIDE
     Route: 065
     Dates: start: 20220103
  10. ATORVASTATIN CALCIUM [Concomitant]
     Active Substance: ATORVASTATIN CALCIUM
  11. BIMATOPROST\TIMOLOL [Concomitant]
     Active Substance: BIMATOPROST\TIMOLOL
  12. ACETAMINOPHEN [Concomitant]
     Active Substance: ACETAMINOPHEN
  13. FONDAPARINUX [Concomitant]
     Active Substance: FONDAPARINUX
  14. LORMETAZEPAM [Concomitant]
     Active Substance: LORMETAZEPAM
  15. DEXCHLORPHENIRAMINE [Concomitant]
     Active Substance: DEXCHLORPHENIRAMINE
  16. ALLOPURINOL [Concomitant]
     Active Substance: ALLOPURINOL
  17. OMEPRAZOLE SODIUM [Concomitant]
     Active Substance: OMEPRAZOLE SODIUM
  18. DORZOLAMIDE HYDROCHLORIDE [Concomitant]
     Active Substance: DORZOLAMIDE HYDROCHLORIDE

REACTIONS (3)
  - Infusion related reaction [Recovered/Resolved]
  - Tumour flare [Recovered/Resolved]
  - Hypercalcaemia [Not Recovered/Not Resolved]

NARRATIVE: CASE EVENT DATE: 20220104
